FAERS Safety Report 13219330 (Version 3)
Quarter: 2017Q1

REPORT INFORMATION
  Report Type: Spontaneous
  Country: US (occurrence: US)
  Receive Date: 20170210
  Receipt Date: 20170228
  Transmission Date: 20170428
  Serious: No
  Sender: FDA-Public Use
  Company Number: US-HORIZON-ACT-0029-2017

PATIENT
  Age: 31 Year
  Sex: Male

DRUGS (4)
  1. LEUCOVORIN. [Concomitant]
     Active Substance: LEUCOVORIN
  2. BACTRIM [Concomitant]
     Active Substance: SULFAMETHOXAZOLE\TRIMETHOPRIM
  3. SPORANOX [Concomitant]
     Active Substance: ITRACONAZOLE
  4. ACTIMMUNE [Suspect]
     Active Substance: INTERFERON GAMMA-1B
     Indication: CHRONIC GRANULOMATOUS DISEASE
     Dosage: 100 MCG MWF
     Route: 058
     Dates: start: 201406

REACTIONS (3)
  - Lack of injection site rotation [Unknown]
  - Influenza like illness [Unknown]
  - Injection site induration [Recovered/Resolved]
